FAERS Safety Report 25593746 (Version 3)
Quarter: 2025Q3

REPORT INFORMATION
  Report Type: Spontaneous
  Country: EU (occurrence: EU)
  Receive Date: 20250723
  Receipt Date: 20250813
  Transmission Date: 20251021
  Serious: Yes (Hospitalization, Other)
  Sender: BRISTOL-MYERS SQUIBB COMPANY
  Company Number: EU-ROCHE-10000326880

PATIENT
  Age: 47 Year
  Sex: Female
  Weight: 70 kg

DRUGS (14)
  1. PACLITAXEL [Suspect]
     Active Substance: PACLITAXEL
     Indication: Triple negative breast cancer
     Route: 042
     Dates: start: 20250415, end: 20250610
  2. TIRAGOLUMAB [Suspect]
     Active Substance: TIRAGOLUMAB
     Indication: Triple negative breast cancer
     Route: 042
     Dates: start: 20250415, end: 20250528
  3. ATEZOLIZUMAB [Suspect]
     Active Substance: ATEZOLIZUMAB
     Indication: Triple negative breast cancer
     Route: 042
     Dates: start: 20250415, end: 20250528
  4. CARBOPLATIN [Suspect]
     Active Substance: CARBOPLATIN
     Indication: Triple negative breast cancer
     Route: 042
     Dates: start: 20250415, end: 20250528
  5. PHLOROGLUCINOL [Concomitant]
     Active Substance: PHLOROGLUCINOL
     Indication: Product used for unknown indication
     Dates: start: 20250509
  6. SMECTA [Concomitant]
     Active Substance: MONTMORILLONITE
     Indication: Product used for unknown indication
     Dates: start: 20250510
  7. POLYETHYLENE GLYCOLS [Concomitant]
     Active Substance: POLYETHYLENE GLYCOLS
     Indication: Product used for unknown indication
     Dates: start: 20250513
  8. MINERAL OIL [Concomitant]
     Active Substance: MINERAL OIL
     Indication: Product used for unknown indication
     Dates: start: 20250513
  9. POTASSIUM BITARTRATE\SODIUM BICARBONATE [Concomitant]
     Active Substance: POTASSIUM BITARTRATE\SODIUM BICARBONATE
     Indication: Product used for unknown indication
     Dates: start: 20250513
  10. MUCOGYNE [Concomitant]
     Indication: Product used for unknown indication
  11. TITANOREINE [CHONDRUS CRISPUS;LIDOCAINE;TITANIUM DIOXIDE;ZINC OXIDE] [Concomitant]
     Indication: Product used for unknown indication
  12. ACETAMINOPHEN [Concomitant]
     Active Substance: ACETAMINOPHEN
     Indication: Product used for unknown indication
     Dates: start: 20250513
  13. FILGRASTIM [Concomitant]
     Active Substance: FILGRASTIM
     Indication: Product used for unknown indication
     Dates: start: 20250529
  14. PREDNISONE [Concomitant]
     Active Substance: PREDNISONE
     Indication: Product used for unknown indication
     Dates: start: 20250628

REACTIONS (1)
  - Myocarditis [Recovered/Resolved]

NARRATIVE: CASE EVENT DATE: 20250623
